FAERS Safety Report 13075623 (Version 1)
Quarter: 2016Q4

REPORT INFORMATION
  Report Type: Spontaneous
  Country: BY (occurrence: BY)
  Receive Date: 20161230
  Receipt Date: 20161230
  Transmission Date: 20170207
  Serious: Yes (Other)
  Sender: FDA-Public Use
  Company Number: BY-009507513-1612BLR014095

PATIENT
  Age: 45 Year
  Sex: Female
  Weight: 90 kg

DRUGS (2)
  1. ITRACONAZOLE. [Suspect]
     Active Substance: ITRACONAZOLE
     Indication: SINUSITIS
     Dosage: UNK
     Dates: start: 20150615, end: 20150630
  2. NASONEX [Suspect]
     Active Substance: MOMETASONE FUROATE
     Indication: SINUSITIS
     Dosage: 1 MONTH OF APPLICATION/2 MONTHS OF PAUSE
     Dates: start: 20150310, end: 20161010

REACTIONS (8)
  - Aspergillus test positive [Unknown]
  - Candida test positive [Unknown]
  - Staphylococcus test positive [Unknown]
  - Sinusitis [Unknown]
  - Product use issue [Unknown]
  - Mycetoma mycotic [Unknown]
  - Osteonecrosis [Unknown]
  - Klebsiella test positive [Unknown]

NARRATIVE: CASE EVENT DATE: 20150310
